FAERS Safety Report 24845796 (Version 1)
Quarter: 2025Q1

REPORT INFORMATION
  Report Type: Spontaneous
  Country: US (occurrence: None)
  Receive Date: 20250114
  Receipt Date: 20250114
  Transmission Date: 20250409
  Serious: Yes (Life-Threatening)
  Sender: FDA-CTU
  Company Number: None

PATIENT
  Age: 58 Year
  Sex: Male
  Weight: 102.06 kg

DRUGS (8)
  1. LYUMJEV [Suspect]
     Active Substance: INSULIN LISPRO-AABC
  2. TANDEM MOBI INSULIN PUMP [Concomitant]
  3. BAQSIMI [Concomitant]
     Active Substance: GLUCAGON
  4. ATORVASTATIN [Concomitant]
     Active Substance: ATORVASTATIN
  5. LOSARTAN [Concomitant]
     Active Substance: LOSARTAN
  6. EZETUMBE [Concomitant]
  7. NAPROXEN [Concomitant]
     Active Substance: NAPROXEN
  8. OMEPRAZOLE [Concomitant]
     Active Substance: OMEPRAZOLE

REACTIONS (4)
  - Device malfunction [None]
  - Hypoglycaemia [None]
  - Hyperglycaemia [None]
  - Blood glucose false positive [None]

NARRATIVE: CASE EVENT DATE: 20241215
